FAERS Safety Report 12536407 (Version 1)
Quarter: 2016Q3

REPORT INFORMATION
  Report Type: Report from Study
  Country: KR (occurrence: KR)
  Receive Date: 20160707
  Receipt Date: 20160707
  Transmission Date: 20161109
  Serious: Yes (Life-Threatening, Hospitalization)
  Sender: FDA-Public Use
  Company Number: KR-EISAI MEDICAL RESEARCH-EC-2015-005322

PATIENT
  Age: 46 Year
  Sex: Female
  Weight: 43.3 kg

DRUGS (7)
  1. PYRIDOXINE [Concomitant]
     Active Substance: PYRIDOXINE
  2. ENTELON [Concomitant]
  3. MEGACE [Concomitant]
     Active Substance: MEGESTROL ACETATE
  4. HALAVEN [Suspect]
     Active Substance: ERIBULIN MESYLATE
     Indication: BREAST CANCER
     Route: 041
     Dates: start: 20140611, end: 20150127
  5. TARGIN [Concomitant]
     Active Substance: NALOXONE HYDROCHLORIDE\OXYCODONE HYDROCHLORIDE
  6. HEPA-MERZ POW [Concomitant]
  7. IRCODON [Concomitant]

REACTIONS (2)
  - Neutropenia [Recovered/Resolved]
  - Dyspnoea [Not Recovered/Not Resolved]

NARRATIVE: CASE EVENT DATE: 20141211
